FAERS Safety Report 9011778 (Version 1)
Quarter: 2013Q1

REPORT INFORMATION
  Report Type: Spontaneous
  Country: US (occurrence: US)
  Receive Date: 20130113
  Receipt Date: 20130113
  Transmission Date: 20140127
  Serious: Yes (Other)
  Sender: FDA-Public Use
  Company Number: US-009507513-0902USA00765

PATIENT
  Age: 8 Year
  Sex: Male
  Weight: 31.75 kg

DRUGS (1)
  1. SINGULAIR [Suspect]
     Indication: ASTHMA
     Dosage: 5 MG, QD
     Route: 048
     Dates: start: 20080801, end: 20080904

REACTIONS (2)
  - Eye movement disorder [Unknown]
  - Tic [Unknown]
